FAERS Safety Report 5375034-3 (Version None)
Quarter: 2007Q2

REPORT INFORMATION
  Report Type: 
  Country: None (occurrence: None)
  Receive Date: 20070629
  Receipt Date: 20070626
  Transmission Date: 20071010
  Serious: Yes (Other)
  Sender: FDA-Public Use
  Company Number: HQWYE854429JUN07

PATIENT
  Age: 35 Year
  Sex: Male

DRUGS (1)
  1. PRIMATENE MIST [Suspect]
     Indication: ASTHMA
     Dosage: 1-2 PUFFS EVERY 6-10 HOURS
     Route: 055
     Dates: start: 19920101

REACTIONS (3)
  - ANGER [None]
  - DRUG DEPENDENCE [None]
  - LUNG DISORDER [None]
